FAERS Safety Report 13866647 (Version 1)
Quarter: 2017Q3

REPORT INFORMATION
  Report Type: Spontaneous
  Country: US (occurrence: US)
  Receive Date: 20170814
  Receipt Date: 20170814
  Transmission Date: 20171127
  Serious: No
  Sender: FDA-Public Use
  Company Number: US-ROCHE-1913073

PATIENT
  Sex: Female

DRUGS (9)
  1. LORAZEPAM. [Concomitant]
     Active Substance: LORAZEPAM
  2. FISH OIL [Concomitant]
     Active Substance: FISH OIL
  3. HALDOL [Concomitant]
     Active Substance: HALOPERIDOL
  4. COGENTIN [Concomitant]
     Active Substance: BENZTROPINE MESYLATE
  5. LEUCOVORIN CALCIUM. [Concomitant]
     Active Substance: LEUCOVORIN CALCIUM
  6. METHOTREXATE. [Concomitant]
     Active Substance: METHOTREXATE
  7. ATIVAN [Concomitant]
     Active Substance: LORAZEPAM
  8. CELEXA [Concomitant]
     Active Substance: CITALOPRAM HYDROBROMIDE
  9. ACTEMRA [Suspect]
     Active Substance: TOCILIZUMAB
     Indication: JUVENILE IDIOPATHIC ARTHRITIS
     Route: 058
     Dates: start: 20160525

REACTIONS (4)
  - Fatigue [Unknown]
  - Anxiety [Unknown]
  - Joint stiffness [Unknown]
  - Arthralgia [Unknown]
